FAERS Safety Report 9207411 (Version 1)
Quarter: 2013Q2

REPORT INFORMATION
  Report Type: Spontaneous
  Country: US (occurrence: US)
  Receive Date: 20130403
  Receipt Date: 20130403
  Transmission Date: 20140414
  Serious: Yes (Hospitalization)
  Sender: FDA-Public Use
  Company Number: US-ELI_LILLY_AND_COMPANY-US201303008917

PATIENT
  Sex: Male

DRUGS (11)
  1. FORTEO [Suspect]
     Indication: OSTEOPOROSIS
     Dosage: 20 UG, QD
     Dates: start: 20121116, end: 20130320
  2. ALBUTEROL [Concomitant]
     Dosage: UNK, QID
  3. ATIVAN [Concomitant]
     Indication: ANXIETY
     Dosage: 1 MG, EVERY 8 HRS
  4. CALCIUM +VIT D [Concomitant]
     Dosage: 1000 MG, QD
  5. VITAMIN D3 [Concomitant]
     Dosage: 2000 U, QD
  6. ADVAIR [Concomitant]
     Dosage: UNK, BID
  7. HYDROCHLOROTHIAZIDE [Concomitant]
     Dosage: 25 MG, QD
  8. VICODIN [Concomitant]
     Indication: PAIN
     Dosage: UNK, QID
  9. MULTIVITAMIN [Concomitant]
     Dosage: UNK, QD
  10. TAMSULOSIN [Concomitant]
     Indication: URINARY RETENTION
     Dosage: UNK, QD
  11. SPIRIVA [Concomitant]
     Dosage: 18 UG, QD

REACTIONS (7)
  - Hernia [Unknown]
  - Cough [Unknown]
  - Pollakiuria [Unknown]
  - Micturition urgency [Unknown]
  - Urinary retention [Unknown]
  - Weight fluctuation [Unknown]
  - Pain of skin [Unknown]
